FAERS Safety Report 7651690-1 (Version None)
Quarter: 2011Q3

REPORT INFORMATION
  Report Type: 
  Country: None (occurrence: None)
  Receive Date: 20110802
  Receipt Date: 20110728
  Transmission Date: 20111222
  Serious: Yes (Other)
  Sender: FDA-Public Use
  Company Number: CZ-AMGEN-CZECT2011008091

PATIENT
  Age: 54 Year
  Sex: Female

DRUGS (13)
  1. LYRICA [Concomitant]
  2. AMLODIPINE [Concomitant]
  3. AMPRILAN [Concomitant]
  4. METHOTREXATE [Concomitant]
     Dosage: UNK UNK, Q4WK
     Route: 042
     Dates: start: 20100402
  5. CITALEC [Concomitant]
  6. HELICID [Concomitant]
  7. DENOSUMAB [Suspect]
     Indication: METASTASES TO BONE
     Dosage: 1.7 ML, Q4WK
     Route: 058
     Dates: start: 20070831, end: 20110211
  8. PREDNISONE [Concomitant]
     Dosage: UNK
     Route: 048
     Dates: start: 20041101
  9. FERROUS SULFATE TAB [Concomitant]
  10. FLUOROURACIL [Concomitant]
     Dosage: UNK UNK, Q4WK
     Route: 042
     Dates: start: 20100402
  11. CYCLOPHOSPHAMIDE [Concomitant]
     Dosage: UNK UNK, Q4WK
     Route: 042
     Dates: start: 20100402
  12. ZOMETA [Concomitant]
     Dosage: UNK UNK, Q4WK
     Dates: start: 20090731, end: 20090828
  13. CALCIUM CARBONATE [Concomitant]

REACTIONS (1)
  - OSTEONECROSIS OF JAW [None]
